FAERS Safety Report 19397141 (Version 1)
Quarter: 2021Q2

REPORT INFORMATION
  Report Type: Spontaneous
  Country: CA (occurrence: CA)
  Receive Date: 20210609
  Receipt Date: 20210609
  Transmission Date: 20210717
  Serious: Yes (Other)
  Sender: FDA-Public Use
  Company Number: CA-ANIPHARMA-2021-CA-000642

PATIENT
  Age: 32 Year
  Sex: Male

DRUGS (3)
  1. VANCOMYCIN HYDROCHLORIDE (NON?SPECIFIC) [Suspect]
     Active Substance: VANCOMYCIN HYDROCHLORIDE
     Indication: GROIN ABSCESS
     Route: 042
  2. RIZATRIPTAN. [Concomitant]
     Active Substance: RIZATRIPTAN
  3. METHYLPHENIDATE. [Concomitant]
     Active Substance: METHYLPHENIDATE

REACTIONS (2)
  - Myocardial infarction [Unknown]
  - Kounis syndrome [Unknown]
